FAERS Safety Report 7756535-7 (Version None)
Quarter: 2011Q3

REPORT INFORMATION
  Report Type: 
  Country: None (occurrence: None)
  Receive Date: 20110916
  Receipt Date: 20110913
  Transmission Date: 20111222
  Serious: Yes (Other)
  Sender: FDA-Public Use
  Company Number: ES-ABBOTT-11P-144-0853756-00

PATIENT
  Age: 62 Year
  Sex: Female

DRUGS (5)
  1. VITAMINE D3 [Concomitant]
     Indication: OSTEOPOROSIS
  2. HUMIRA [Suspect]
     Indication: RHEUMATOID ARTHRITIS
     Dates: start: 20100611
  3. METHOTREXATE [Concomitant]
     Indication: RHEUMATOID ARTHRITIS
     Dates: start: 20070201
  4. ALENDRONATO 70 [Concomitant]
     Indication: OSTEOPOROSIS
  5. PIDOLATO CALCICO [Concomitant]
     Indication: OSTEOPOROSIS

REACTIONS (2)
  - LACUNAR INFARCTION [None]
  - DYSLIPIDAEMIA [None]
